FAERS Safety Report 6124384-1 (Version None)
Quarter: 2009Q1

REPORT INFORMATION
  Report Type: 
  Country: None (occurrence: None)
  Receive Date: 20090318
  Receipt Date: 20090318
  Transmission Date: 20090719
  Serious: No
  Sender: FDA-Public Use
  Company Number: None

PATIENT
  Age: 69 Year
  Sex: Female
  Weight: 81.6475 kg

DRUGS (3)
  1. LYRICA [Suspect]
     Indication: MUSCULOSKELETAL PAIN
     Dosage: ONE PILLS TWICE PER DAY 2 PER DAY UNK
     Dates: start: 20090102, end: 20090131
  2. LYRICA [Suspect]
     Indication: PAIN IN EXTREMITY
     Dosage: ONE PILLS TWICE PER DAY 2 PER DAY UNK
     Dates: start: 20090102, end: 20090131
  3. LYRICA [Suspect]
     Dates: start: 20090101, end: 20090220

REACTIONS (6)
  - ACTIVITIES OF DAILY LIVING IMPAIRED [None]
  - ARTHRALGIA [None]
  - FEAR [None]
  - GENERAL PHYSICAL HEALTH DETERIORATION [None]
  - ILL-DEFINED DISORDER [None]
  - PAIN IN EXTREMITY [None]
